FAERS Safety Report 5723075-6 (Version None)
Quarter: 2008Q2

REPORT INFORMATION
  Report Type: 
  Country: None (occurrence: None)
  Receive Date: 20080430
  Receipt Date: 20080326
  Transmission Date: 20081010
  Serious: Yes (Other)
  Sender: FDA-Public Use
  Company Number: US-BAUSCH-2007BL002432

PATIENT
  Age: 46 Year
  Sex: Female

DRUGS (6)
  1. FLUOCINOLONE ACETONIDE [Suspect]
     Indication: VOGT-KOYANAGI-HARADA SYNDROME
     Route: 047
     Dates: start: 20060321
  2. FLUOCINOLONE ACETONIDE [Suspect]
     Route: 047
     Dates: start: 20060711
  3. METFORMIN HCL [Concomitant]
     Indication: DIABETES MELLITUS
     Route: 048
  4. LEVOXYL [Concomitant]
     Indication: HYPOTHYROIDISM
  5. LIPITOR [Concomitant]
     Indication: HYPERCHOLESTEROLAEMIA
     Route: 048
  6. LANTUS [Concomitant]
     Indication: DIABETES MELLITUS

REACTIONS (5)
  - CATARACT [None]
  - DRUG INEFFECTIVE [None]
  - HYPHAEMA [None]
  - PHOTOPHOBIA [None]
  - RETINAL TEAR [None]
